FAERS Safety Report 7378313-3 (Version None)
Quarter: 2011Q1

REPORT INFORMATION
  Report Type: 
  Country: None (occurrence: None)
  Receive Date: 20110328
  Receipt Date: 20110317
  Transmission Date: 20110831
  Serious: Yes (Other)
  Sender: FDA-Public Use
  Company Number: AU-JNJFOC-20100701483

PATIENT
  Sex: Female

DRUGS (2)
  1. METHOTREXATE [Concomitant]
     Indication: PSORIASIS
     Route: 048
  2. STELARA [Suspect]
     Indication: PSORIASIS
     Route: 058

REACTIONS (5)
  - BACK PAIN [None]
  - HEADACHE [None]
  - ARTHRITIS [None]
  - OROPHARYNGEAL PAIN [None]
  - CHEST DISCOMFORT [None]
